FAERS Safety Report 6706865-2 (Version None)
Quarter: 2010Q2

REPORT INFORMATION
  Report Type: 
  Country: None (occurrence: None)
  Receive Date: 20100503
  Receipt Date: 20100421
  Transmission Date: 20101027
  Serious: Yes (Hospitalization)
  Sender: FDA-Public Use
  Company Number: GB-ELI_LILLY_AND_COMPANY-GB201003005540

PATIENT
  Sex: Female

DRUGS (9)
  1. ZYPREXA [Suspect]
     Indication: BIPOLAR I DISORDER
     Dosage: UNK, UNK
     Dates: start: 20080906
  2. ZYPREXA [Suspect]
     Dosage: 10 MG, DAILY (1/D)
  3. ZYPREXA [Suspect]
     Dosage: 15 MG, DAILY (1/D)
  4. ZYPREXA [Suspect]
     Dosage: 5 MG, UNK
  5. ZYPREXA [Suspect]
     Dosage: 10 MG, UNK
  6. ZYPREXA [Suspect]
     Dosage: 15 MG, UNK
  7. HALOPERIDOL [Concomitant]
     Dosage: 10 MG, UNK
     Dates: start: 20081001
  8. CARBAMAZEPINE [Concomitant]
     Dosage: 800 MG, UNK
     Dates: start: 20080906, end: 20081101
  9. CARBAMAZEPINE [Concomitant]
     Dosage: 600 MG, UNK
     Dates: start: 20081101

REACTIONS (16)
  - APATHY [None]
  - ASTHENIA [None]
  - CHRONIC OBSTRUCTIVE PULMONARY DISEASE [None]
  - DIZZINESS [None]
  - HYPERSENSITIVITY [None]
  - HYPOVENTILATION [None]
  - LETHARGY [None]
  - MENTAL DISORDER [None]
  - MUSCLE SPASMS [None]
  - OEDEMA PERIPHERAL [None]
  - PRURITUS [None]
  - RENAL IMPAIRMENT [None]
  - URINARY INCONTINENCE [None]
  - URINARY RETENTION [None]
  - VARICOSE VEIN [None]
  - WEIGHT INCREASED [None]
